FAERS Safety Report 12594936 (Version 1)
Quarter: 2016Q3

REPORT INFORMATION
  Report Type: Spontaneous
  Country: US (occurrence: US)
  Receive Date: 20160726
  Receipt Date: 20160726
  Transmission Date: 20161109
  Serious: Yes (Hospitalization)
  Sender: FDA-Public Use
  Company Number: US-LPDUSPRD-20160633

PATIENT
  Age: 18 Year
  Sex: Male

DRUGS (2)
  1. PREDNISONE. [Suspect]
     Active Substance: PREDNISONE
     Dosage: DOSE NOT SPECIFIED
     Route: 065
  2. CYCLOSPORINE INJECTION, USP (866-10) [Suspect]
     Active Substance: CYCLOSPORINE
     Dosage: DOSE NOT SPECIFIED
     Route: 065

REACTIONS (4)
  - Lung infection [Unknown]
  - Lung neoplasm [Unknown]
  - Mucormycosis [Unknown]
  - Renal tubular necrosis [Not Recovered/Not Resolved]
